FAERS Safety Report 8142225-8 (Version None)
Quarter: 2012Q1

REPORT INFORMATION
  Report Type: 
  Country: None (occurrence: None)
  Receive Date: 20120103
  Receipt Date: 20111024
  Transmission Date: 20120608
  Serious: No
  Sender: FDA-Public Use
  Company Number: AE-2011-002636

PATIENT
  Age: 57 Year
  Sex: Female
  Weight: 56.6996 kg

DRUGS (5)
  1. DIOVAN [Concomitant]
  2. INCIVEK [Suspect]
     Dosage: 6 (2, 3 IN 1 D),ORAL
     Route: 048
     Dates: start: 20111014
  3. RIBAPAK (RIBAVIRIN) [Concomitant]
  4. PEGINTERFERON (PEGINTERFERON ALFA-2A) [Concomitant]
  5. AMLODIPINE [Concomitant]

REACTIONS (1)
  - NAUSEA [None]
